FAERS Safety Report 12994944 (Version 2)
Quarter: 2017Q1

REPORT INFORMATION
  Report Type: Spontaneous
  Country: US (occurrence: US)
  Receive Date: 20161202
  Receipt Date: 20170103
  Transmission Date: 20170428
  Serious: Yes (Death, Other)
  Sender: FDA-Public Use
  Company Number: US-SMITH AND NEPHEW, INC-2016SMT01039

PATIENT
  Age: 63 Year
  Sex: Female
  Weight: 78.46 kg

DRUGS (6)
  1. XANAX [Concomitant]
     Active Substance: ALPRAZOLAM
  2. UNSPECIFIED OTHER MEDICATIONS [Concomitant]
     Active Substance: UNSPECIFIED INGREDIENT
  3. GABAPENTIN. [Concomitant]
     Active Substance: GABAPENTIN
  4. OXYCONTIN [Concomitant]
     Active Substance: OXYCODONE HYDROCHLORIDE
     Dosage: UNK MG, UNK
  5. OXYCODONE [Concomitant]
     Active Substance: OXYCODONE
  6. REGRANEX [Suspect]
     Active Substance: BECAPLERMIN
     Indication: DIABETIC ULCER
     Dosage: UNK, AS DIRECTED
     Route: 061
     Dates: start: 201610, end: 20161115

REACTIONS (5)
  - Death [Fatal]
  - Abnormal behaviour [Unknown]
  - Application site pain [Recovered/Resolved]
  - Toxicity to various agents [Recovered/Resolved]
  - Nephropathy toxic [Unknown]

NARRATIVE: CASE EVENT DATE: 201610
